FAERS Safety Report 9836650 (Version 1)
Quarter: 2013Q4

REPORT INFORMATION
  Report Type: Spontaneous
  Country: US (occurrence: None)
  Receive Date: 20131127
  Receipt Date: 20131127
  Transmission Date: 20140711
  Serious: Yes (Other)
  Sender: FDA-Public Use
  Company Number: 223493

PATIENT
  Age: 69 Year
  Sex: Male

DRUGS (2)
  1. PICATO [Suspect]
     Indication: PRECANCEROUS CELLS PRESENT
     Dosage: DAILY TOPICAL
     Route: 061
     Dates: start: 20130816
  2. PICATO (INGENOL MEBUTATE) [Concomitant]

REACTIONS (7)
  - Application site erythema [None]
  - Application site scab [None]
  - Application site discomfort [None]
  - Application site dryness [None]
  - Eye swelling [None]
  - Drug administered at inappropriate site [None]
  - Inappropriate schedule of drug administration [None]
